FAERS Safety Report 13074682 (Version 1)
Quarter: 2016Q4

REPORT INFORMATION
  Report Type: Spontaneous
  Country: US (occurrence: US)
  Receive Date: 20161230
  Receipt Date: 20161230
  Transmission Date: 20170207
  Serious: No
  Sender: FDA-Public Use
  Company Number: US-TEVA-632167USA

PATIENT
  Age: 50 Year
  Sex: Male

DRUGS (3)
  1. TRAZODONE [Suspect]
     Active Substance: TRAZODONE HYDROCHLORIDE
     Indication: INSOMNIA
  2. TRAZODONE [Suspect]
     Active Substance: TRAZODONE HYDROCHLORIDE
     Indication: SLEEP DISORDER
     Dosage: ONE DOSE ONLY
     Route: 048
     Dates: start: 20160201, end: 20160201
  3. PERCOCET [Concomitant]
     Active Substance: ACETAMINOPHEN\OXYCODONE HYDROCHLORIDE
     Indication: BACK PAIN
     Dosage: UNKNOWN DOSE, THEN DOSE WAS LOWERED

REACTIONS (15)
  - Headache [Unknown]
  - Night sweats [Unknown]
  - Chest discomfort [Unknown]
  - Abnormal behaviour [Unknown]
  - Psychopathic personality [Unknown]
  - Agitation [Unknown]
  - Screaming [Unknown]
  - Tremor [Unknown]
  - Irritability [Unknown]
  - Insomnia [Unknown]
  - Abdominal pain upper [Unknown]
  - Aggression [Unknown]
  - Adverse event [Unknown]
  - Muscle twitching [Unknown]
  - Hallucination [Unknown]

NARRATIVE: CASE EVENT DATE: 201602
